FAERS Safety Report 17901876 (Version 1)
Quarter: 2020Q2

REPORT INFORMATION
  Report Type: Spontaneous
  Country: FR (occurrence: FR)
  Receive Date: 20200616
  Receipt Date: 20200616
  Transmission Date: 20200714
  Serious: Yes (Other)
  Sender: FDA-Public Use
  Company Number: FR-B.I. PHARMACEUTICALS,INC./RIDGEFIELD-2020-BI-029198

PATIENT
  Sex: Female
  Weight: 75 kg

DRUGS (3)
  1. CATAPRESSAN [Suspect]
     Active Substance: CLONIDINE
     Indication: EPIDURAL ANAESTHESIA
     Dosage: DOSE: 1MCG/ML
     Route: 065
  2. LEVOBUPIVACAINE [Concomitant]
     Active Substance: LEVOBUPIVACAINE
     Indication: EPIDURAL ANAESTHESIA
     Dosage: 0.08%
     Route: 065
  3. SUFENTANIL [Concomitant]
     Active Substance: SUFENTANIL
     Indication: EPIDURAL ANAESTHESIA
     Dosage: STRENGTH: 0.5MCG/ML
     Route: 065

REACTIONS (7)
  - Local anaesthetic systemic toxicity [Unknown]
  - Nausea [Not Recovered/Not Resolved]
  - Nystagmus [Unknown]
  - Hypotension [Recovered/Resolved]
  - Coma [Recovered/Resolved]
  - Somnolence [Unknown]
  - Tremor [Unknown]
